FAERS Safety Report 9301513 (Version 2)
Quarter: 2013Q3

REPORT INFORMATION
  Report Type: Report from Study
  Country: BR (occurrence: BR)
  Receive Date: 20130521
  Receipt Date: 20130902
  Transmission Date: 20140515
  Serious: Yes (Hospitalization, Other)
  Sender: FDA-Public Use
  Company Number: PHHY2013BR050690

PATIENT
  Age: 84 Year
  Sex: Female
  Weight: 51 kg

DRUGS (2)
  1. DIOVAN AMLO FIX [Suspect]
     Indication: HYPERTENSION
     Dosage: 1 DF(320 MG VALS/5MG AMLO), DAILY
     Route: 048
     Dates: start: 2008
  2. AMARYL [Concomitant]
     Indication: DIABETES MELLITUS
     Dosage: 1 DF(2MG), QD(DAILY FASTING)
     Route: 048
     Dates: start: 2005

REACTIONS (2)
  - Cerebrovascular accident [Recovered/Resolved]
  - Blood pressure increased [Recovered/Resolved]
